FAERS Safety Report 4534203-2 (Version None)
Quarter: 2004Q4

REPORT INFORMATION
  Report Type: 
  Country: None (occurrence: None)
  Receive Date: 20041214
  Receipt Date: 20040830
  Transmission Date: 20050328
  Serious: No
  Sender: FDA-Public Use
  Company Number: 2004232899US

PATIENT
  Age: 55 Year
  Sex: Female
  Weight: 145.1 kg

DRUGS (1)
  1. BEXTRA [Suspect]
     Indication: SWELLING
     Dosage: 10 MG QD ORAL
     Route: 048
     Dates: start: 20040827

REACTIONS (3)
  - BACK PAIN [None]
  - DYSPNOEA [None]
  - LUNG DISORDER [None]
